FAERS Safety Report 14745975 (Version 1)
Quarter: 2018Q2

REPORT INFORMATION
  Report Type: Spontaneous
  Country: US (occurrence: US)
  Receive Date: 20180411
  Receipt Date: 20180411
  Transmission Date: 20180711
  Serious: No
  Sender: FDA-Public Use
  Company Number: US-WEST-WARD PHARMACEUTICALS CORP.-US-H14001-18-01487

PATIENT
  Age: 77 Year
  Sex: Female

DRUGS (2)
  1. MEPERIDINE [Suspect]
     Active Substance: MEPERIDINE
     Indication: BACK PAIN
  2. MEPERIDINE [Suspect]
     Active Substance: MEPERIDINE
     Indication: SCOLIOSIS
     Route: 048
     Dates: start: 20180217

REACTIONS (4)
  - Rash maculo-papular [Unknown]
  - Headache [Unknown]
  - Eye pain [Unknown]
  - Nausea [Unknown]

NARRATIVE: CASE EVENT DATE: 20180217
